FAERS Safety Report 25994760 (Version 1)
Quarter: 2025Q4

REPORT INFORMATION
  Report Type: Spontaneous
  Country: US (occurrence: US)
  Receive Date: 20251104
  Receipt Date: 20251104
  Transmission Date: 20260117
  Serious: No
  Sender: ABBVIE
  Company Number: US-ABBVIE-6528825

PATIENT
  Age: 60 Year
  Sex: Male
  Weight: 67.131 kg

DRUGS (1)
  1. UPADACITINIB [Suspect]
     Active Substance: UPADACITINIB
     Indication: Product used for unknown indication
     Dosage: FORM STRENGTH 50 MG
     Route: 048

REACTIONS (2)
  - Dry skin [Unknown]
  - Pruritus [Unknown]
